FAERS Safety Report 5372686-9 (Version None)
Quarter: 2007Q2

REPORT INFORMATION
  Report Type: 
  Country: None (occurrence: None)
  Receive Date: 20070626
  Receipt Date: 20070612
  Transmission Date: 20071010
  Serious: Yes (Other)
  Sender: FDA-Public Use
  Company Number: POMP-11091

PATIENT
  Age: 3 Year
  Sex: Female
  Weight: 15.6 kg

DRUGS (2)
  1. MYOZYME [Suspect]
     Indication: GLYCOGEN STORAGE DISEASE TYPE II
     Dosage: 20 MG/KG QW2KS IV
     Route: 042
     Dates: start: 20061011
  2. ALPHA-GLUCOSIDASE (HUMAN, RECOMBINANT, CHO CELLS, GENZYME). MFR: GENZY [Suspect]
     Indication: GLYCOGEN STORAGE DISEASE TYPE II
     Dosage: 20 MG/KG Q2WKS IV
     Route: 042
     Dates: start: 20040426, end: 20060927

REACTIONS (5)
  - BLOOD PRESSURE SYSTOLIC DECREASED [None]
  - CYANOSIS [None]
  - GAIT DISTURBANCE [None]
  - HYPERSENSITIVITY [None]
  - HYPOTONIA [None]
